FAERS Safety Report 8578679-2 (Version None)
Quarter: 2012Q3

REPORT INFORMATION
  Report Type: 
  Country: None (occurrence: None)
  Receive Date: 20120808
  Receipt Date: 20120802
  Transmission Date: 20120928
  Serious: Yes (Hospitalization)
  Sender: FDA-Public Use
  Company Number: PHHY2012FR067142

PATIENT
  Sex: Female

DRUGS (5)
  1. METHOTREXATE SODIUM [Concomitant]
     Dates: start: 20010212, end: 20110601
  2. FOLIC ACID [Concomitant]
     Dates: start: 20110501
  3. NEORAL [Suspect]
     Dosage: 150 MG, BID
     Route: 048
     Dates: start: 20100601, end: 20120626
  4. METHOTREXATE [Suspect]
     Dosage: 10 MG, QW
     Route: 048
     Dates: start: 20110601, end: 20120626
  5. CORTISONE ACETATE [Concomitant]
     Dosage: 80 MG, UNK
     Dates: start: 20040101

REACTIONS (7)
  - TRICHINIASIS [None]
  - NEUTROPENIA [None]
  - THROMBOCYTOPENIA [None]
  - CONCOMITANT DISEASE AGGRAVATED [None]
  - DERMATOMYOSITIS [None]
  - ANAEMIA [None]
  - LEUKOPENIA [None]
